FAERS Safety Report 14492547 (Version 1)
Quarter: 2018Q1

REPORT INFORMATION
  Report Type: Spontaneous
  Country: US (occurrence: US)
  Receive Date: 20180206
  Receipt Date: 20180206
  Transmission Date: 20180509
  Serious: Yes (Hospitalization, Other)
  Sender: FDA-Public Use
  Company Number: US-ASTRAZENECA-2018SE12610

PATIENT
  Sex: Female

DRUGS (1)
  1. BYDUREON [Suspect]
     Active Substance: EXENATIDE
     Route: 065

REACTIONS (7)
  - Diarrhoea [Unknown]
  - Vomiting [Unknown]
  - Food poisoning [Unknown]
  - Dyspepsia [Unknown]
  - Gastroenteritis viral [Unknown]
  - Impaired gastric emptying [Unknown]
  - Oesophagitis [Unknown]
